FAERS Safety Report 26138977 (Version 1)
Quarter: 2025Q4

REPORT INFORMATION
  Report Type: Other
  Country: US (occurrence: US)
  Receive Date: 20251210
  Receipt Date: 20251210
  Transmission Date: 20260118
  Serious: Yes (Other)
  Sender: MADRIGAL PHARMACEUTICALS
  Company Number: US-MADRIGAL PHARMACEUTICALS, INC-2025USREZ15398

PATIENT

DRUGS (1)
  1. REZDIFFRA [Suspect]
     Active Substance: RESMETIROM
     Indication: Enzyme level abnormal
     Dosage: 80 MILLIGRAM, QD
     Route: 048

REACTIONS (5)
  - Hepatic fibrosis [Unknown]
  - Weight increased [Unknown]
  - Unevaluable event [Unknown]
  - Hepatic cyst [Unknown]
  - Product use in unapproved indication [Unknown]
